FAERS Safety Report 16384223 (Version 1)
Quarter: 2019Q3

REPORT INFORMATION
  Report Type: Spontaneous
  Country: US (occurrence: US)
  Receive Date: 20190531
  Receipt Date: 20190531
  Transmission Date: 20191004
  Serious: Yes (Hospitalization, Other)
  Sender: FDA-Public Use
  Company Number: None

PATIENT
  Age: 47 Year
  Sex: Female
  Weight: 91.35 kg

DRUGS (14)
  1. GABAPENTIN. [Concomitant]
     Active Substance: GABAPENTIN
  2. GLUCOSAMINE CHONDRITIN [Concomitant]
  3. HYDROCHLOROTHIAZIDE. [Concomitant]
     Active Substance: HYDROCHLOROTHIAZIDE
  4. LIDOCAINE. [Concomitant]
     Active Substance: LIDOCAINE
  5. IRON [Concomitant]
     Active Substance: IRON
  6. VITAMIN C [Concomitant]
     Active Substance: ASCORBIC ACID
  7. CYMBALTA [Concomitant]
     Active Substance: DULOXETINE HYDROCHLORIDE
  8. NAPROXEN. [Concomitant]
     Active Substance: NAPROXEN
  9. AMLODIPINE BESYLATE. [Concomitant]
     Active Substance: AMLODIPINE BESYLATE
  10. ASPRIN [Concomitant]
     Active Substance: ASPIRIN
  11. MULTI-VITAMIN [Concomitant]
     Active Substance: .ALPHA.-TOCOPHEROL ACETATE, DL-\ASCORBIC ACID\CYANOCOBALAMIN\FLUORIDE ION\FOLIC ACID\NIACIN\PYRIDOXINE\RIBOFLAVIN\THIAMINE\VITAMIN A\VITAMIN D
  12. VITAMIN D [Concomitant]
     Active Substance: VITAMIN D NOS
  13. LISINOPRIL. [Suspect]
     Active Substance: LISINOPRIL
     Indication: HYPERTENSION
     Dosage: ?          QUANTITY:1 TABLET(S);?
     Route: 048
     Dates: start: 20190127, end: 20190506
  14. TYLENOL [Concomitant]
     Active Substance: ACETAMINOPHEN

REACTIONS (3)
  - Angioedema [None]
  - Cough [None]
  - Poor quality sleep [None]

NARRATIVE: CASE EVENT DATE: 20190429
